FAERS Safety Report 4648948-7 (Version None)
Quarter: 2005Q2

REPORT INFORMATION
  Report Type: 
  Country: None (occurrence: None)
  Receive Date: 20050427
  Receipt Date: 20050414
  Transmission Date: 20051028
  Serious: Yes (Hospitalization)
  Sender: FDA-Public Use
  Company Number: HQWYE308621JUL04

PATIENT
  Age: 31 Year
  Sex: Male
  Weight: 102.15 kg

DRUGS (2)
  1. ADVIL [Suspect]
     Indication: MIGRAINE
     Dosage: 1 TABLET 1 TO 2 TIMES A WEEK, ORAL
     Route: 048
  2. ALEVE (CAPLET) [Suspect]
     Indication: MIGRAINE
     Dosage: 220 MG AS NEEDED, ORAL
     Route: 048

REACTIONS (21)
  - ACTIVATED PARTIAL THROMBOPLASTIN TIME SHORTENED [None]
  - ANAEMIA [None]
  - ANXIETY [None]
  - BLOOD ALBUMIN DECREASED [None]
  - BLOOD CALCIUM DECREASED [None]
  - BLOOD PRESSURE DECREASED [None]
  - BLOOD PRESSURE SYSTOLIC INCREASED [None]
  - DIARRHOEA INFECTIOUS [None]
  - DUODENAL ULCER [None]
  - FAECAL OCCULT BLOOD POSITIVE [None]
  - GASTROINTESTINAL HAEMORRHAGE [None]
  - HEADACHE [None]
  - PALLOR [None]
  - PEPTIC ULCER [None]
  - PROCEDURAL COMPLICATION [None]
  - PROTEIN TOTAL DECREASED [None]
  - RECTAL HAEMORRHAGE [None]
  - RESPIRATORY RATE INCREASED [None]
  - TACHYCARDIA [None]
  - TRANSFUSION REACTION [None]
  - WHITE BLOOD CELL COUNT INCREASED [None]
